FAERS Safety Report 20069488 (Version 1)
Quarter: 2021Q4

REPORT INFORMATION
  Report Type: Spontaneous
  Country: FI (occurrence: FI)
  Receive Date: 20211115
  Receipt Date: 20211115
  Transmission Date: 20220303
  Serious: Yes (Hospitalization)
  Sender: FDA-Public Use
  Company Number: None

PATIENT
  Age: 26 Year
  Sex: Male

DRUGS (9)
  1. CLOZAPINE [Suspect]
     Active Substance: CLOZAPINE
     Indication: Psychotic disorder
     Dosage: 37.5 MILLIGRAM, QD
     Route: 048
     Dates: start: 20210617, end: 20210630
  2. PANTOPRAZOLE [Concomitant]
     Active Substance: PANTOPRAZOLE
     Indication: Abdominal pain upper
     Dosage: 40 MILLIGRAM, QD (40,MG,DAILY)
     Route: 048
     Dates: start: 20210629, end: 20210705
  3. PANADOL [Concomitant]
     Active Substance: ACETAMINOPHEN
     Indication: Abdominal pain
     Dosage: UNK
     Route: 048
     Dates: start: 20210628, end: 20210702
  4. GAVISCON                           /01279101/ [Concomitant]
     Indication: Dyspepsia
     Dosage: UNK
     Dates: start: 20210701, end: 20210704
  5. IBUPROFEN [Concomitant]
     Active Substance: IBUPROFEN
     Indication: Abdominal pain
     Dosage: UNK
     Route: 048
     Dates: start: 20210625, end: 20210701
  6. LEVOPROMAZIN [Concomitant]
     Active Substance: LEVOMEPROMAZINE
     Indication: Psychotic disorder
     Dosage: 350 MILLIGRAM, QD (350,MG,DAILY)
     Route: 048
     Dates: start: 20210515
  7. PERPHENAZINE [Concomitant]
     Active Substance: PERPHENAZINE
     Indication: Psychotic disorder
     Dosage: 24 MILLIGRAM, QD (24,MG,DAILY)
     Route: 048
     Dates: start: 20210515
  8. OLANZAPINE [Concomitant]
     Active Substance: OLANZAPINE
     Indication: Psychotic disorder
     Dosage: 5 MILLIGRAM, QD (5,MG,DAILY)
     Route: 048
     Dates: start: 20210610, end: 20210628
  9. TEMESTA                            /00273201/ [Concomitant]
     Dosage: UNK
     Route: 048
     Dates: start: 20210515

REACTIONS (6)
  - Abdominal pain upper [Recovering/Resolving]
  - C-reactive protein increased [Recovering/Resolving]
  - Liver disorder [Recovering/Resolving]
  - Colitis [Recovering/Resolving]
  - Hepatic enzyme increased [Recovering/Resolving]
  - Pancreatitis [Recovering/Resolving]

NARRATIVE: CASE EVENT DATE: 20210628
